FAERS Safety Report 6566717-8 (Version None)
Quarter: 2010Q1

REPORT INFORMATION
  Report Type: 
  Country: None (occurrence: None)
  Receive Date: 20100127
  Receipt Date: 20100113
  Transmission Date: 20100710
  Serious: Yes (Hospitalization, Other)
  Sender: FDA-Public Use
  Company Number: 1-21303849

PATIENT
  Age: 53 Year
  Sex: Male

DRUGS (5)
  1. OXCARBAZEPINE [Suspect]
     Indication: CONVULSION
     Dates: start: 20070709
  2. ENALAPRIL MALEATE [Concomitant]
  3. AMLODIPINE BESYLATE [Concomitant]
  4. ASPIRIN [Concomitant]
  5. VALPROIC ACID [Concomitant]

REACTIONS (1)
  - STEVENS-JOHNSON SYNDROME [None]
